FAERS Safety Report 9692966 (Version 1)
Quarter: 2013Q4

REPORT INFORMATION
  Report Type: Spontaneous
  Country: NL (occurrence: NL)
  Receive Date: 20131118
  Receipt Date: 20131118
  Transmission Date: 20140711
  Serious: Yes (Life-Threatening)
  Sender: FDA-Public Use
  Company Number: NL-JNJFOC-20131108690

PATIENT
  Sex: Female

DRUGS (2)
  1. REMICADE [Suspect]
     Indication: CROHN^S DISEASE
     Route: 042
  2. CORTICOSTEROID [Concomitant]
     Indication: PREMEDICATION
     Route: 065

REACTIONS (2)
  - Trismus [Recovered/Resolved]
  - Hypersensitivity [Recovered/Resolved]
